FAERS Safety Report 13466141 (Version 1)
Quarter: 2017Q2

REPORT INFORMATION
  Report Type: Spontaneous
  Country: US (occurrence: US)
  Receive Date: 20170421
  Receipt Date: 20170421
  Transmission Date: 20170830
  Serious: No
  Sender: FDA-Public Use
  Company Number: US-PFIZER INC-2017171246

PATIENT
  Age: 60 Year
  Sex: Female
  Weight: 67 kg

DRUGS (1)
  1. VISTARIL [Suspect]
     Active Substance: HYDROXYZINE PAMOATE
     Indication: MUSCLE TIGHTNESS
     Dosage: 25 MG, 3X/DAY
     Route: 048
     Dates: start: 20170412

REACTIONS (1)
  - Drug ineffective for unapproved indication [Unknown]
